FAERS Safety Report 4625232-9 (Version None)
Quarter: 2005Q2

REPORT INFORMATION
  Report Type: 
  Country: None (occurrence: None)
  Receive Date: 20050401
  Receipt Date: 20050310
  Transmission Date: 20051028
  Serious: Yes (Life-Threatening, Hospitalization)
  Sender: FDA-Public Use
  Company Number: DE-ROCHE-398368

PATIENT
  Age: 44 Year
  Sex: Female

DRUGS (26)
  1. VALIUM [Suspect]
     Indication: SEDATION
     Route: 065
  2. VALIUM [Suspect]
     Route: 065
     Dates: start: 20050225, end: 20050225
  3. DACLIZUMAB [Suspect]
     Route: 042
  4. MYCOPHENOLATE MOFETIL [Suspect]
     Route: 065
  5. TACROLIMUS [Suspect]
     Dosage: DOSE ADJUSTED TO REACH PREDEFINED TARGET LEVELS.
     Route: 048
     Dates: start: 20050222
  6. METHYLPREDNISOLONE [Suspect]
     Route: 065
     Dates: start: 20050217, end: 20050217
  7. METHYLPREDNISOLONE [Suspect]
     Dosage: TREATMENT OF REJECTION.
     Route: 065
     Dates: start: 20050307, end: 20050309
  8. PREDNISONE [Suspect]
     Dosage: TAPER ACCORING TO LOCAL PROTOCOL.
     Route: 065
     Dates: start: 20050218
  9. ACETYLCYSTEINE [Concomitant]
     Dates: start: 20050222, end: 20050306
  10. NOREPINEPHRINE HCL [Concomitant]
     Dates: start: 20050217, end: 20050219
  11. ANTITHROMBIN III [Concomitant]
     Dates: start: 20050217, end: 20050219
  12. SULFAMETHOXAZOLE AND TRIMETHOPRIM [Concomitant]
     Dates: start: 20050218
  13. METOPROLOL SUCCINATE [Concomitant]
     Indication: HYPERTENSION
     Dates: start: 20050222
  14. NADROPARIN [Concomitant]
     Indication: THROMBOSIS PROPHYLAXIS
     Dates: start: 20050222
  15. ALBUMIN (HUMAN) [Concomitant]
     Indication: ILL-DEFINED DISORDER
     Dates: start: 20050219, end: 20050227
  16. HEPARIN [Concomitant]
     Indication: HAEMORRHAGE
     Dates: start: 20050225, end: 20050227
  17. FUROSEMIDE [Concomitant]
     Indication: DIURETIC THERAPY
     Dates: start: 20050218, end: 20050305
  18. BROMAZEPAM [Concomitant]
     Indication: ANXIETY
     Dates: start: 20050224, end: 20050304
  19. NYSTATIN [Concomitant]
     Indication: PROPHYLAXIS
     Dates: start: 20050217
  20. METAMIZOL [Concomitant]
     Dates: start: 20050222, end: 20050228
  21. PANTOPRAZOL [Concomitant]
     Indication: PROPHYLAXIS
     Dates: start: 20050217
  22. CLONIDIN [Concomitant]
     Dates: start: 20050218, end: 20050226
  23. SUCRALFAT [Concomitant]
     Indication: PROPHYLAXIS
     Dates: start: 20050223
  24. MUPIROCIN [Concomitant]
     Indication: PROPHYLAXIS
     Dates: start: 20050217
  25. VALGANCICLOVIR [Concomitant]
     Indication: PROPHYLAXIS
     Route: 065
     Dates: start: 20050222
  26. PIRITRAMID [Concomitant]
     Indication: ANAESTHETIC PREMEDICATION

REACTIONS (1)
  - RESPIRATORY DEPRESSION [None]
